FAERS Safety Report 10482439 (Version 2)
Quarter: 2014Q4

REPORT INFORMATION
  Report Type: Spontaneous
  Country: US (occurrence: US)
  Receive Date: 20140929
  Receipt Date: 20141028
  Transmission Date: 20150528
  Serious: No
  Sender: FDA-Public Use
  Company Number: US-TEVA-509003USA

PATIENT
  Sex: Female

DRUGS (12)
  1. MIRALAX [Concomitant]
     Active Substance: POLYETHYLENE GLYCOL 3350
     Dosage: DAILY PRN
     Route: 048
     Dates: start: 20140522
  2. KLONOPIN [Concomitant]
     Active Substance: CLONAZEPAM
     Dosage: .5 MILLIGRAM DAILY;
     Route: 048
  3. COMBIVENT [Concomitant]
     Active Substance: ALBUTEROL SULFATE\IPRATROPIUM BROMIDE
     Dosage: 16 GRAM DAILY; 20MCG/100MCG
     Route: 055
  4. ZOFRAN [Concomitant]
     Active Substance: ONDANSETRON HYDROCHLORIDE
     Indication: NAUSEA
     Dosage: 1 EVERY 8 HOURS AS NEEDED
     Route: 048
     Dates: start: 20140319
  5. FLUTICASONE PROPIONATE. [Concomitant]
     Active Substance: FLUTICASONE PROPIONATE
     Dosage: 50 MILLIGRAM DAILY;
     Dates: start: 20130409
  6. GRANIX [Suspect]
     Active Substance: TBO-FILGRASTIM
     Indication: NEUTROPENIA
     Route: 065
  7. PROCHLORPERAZINE MALEATE. [Concomitant]
     Active Substance: PROCHLORPERAZINE MALEATE
     Indication: NAUSEA
     Dosage: 1 EVERY 6 HOURS AS NEEDED
     Route: 048
     Dates: start: 20140319
  8. FOLIC ACID. [Concomitant]
     Active Substance: FOLIC ACID
     Dosage: 1 MILLIGRAM DAILY;
     Route: 048
     Dates: start: 20120917
  9. SENNA-S [Concomitant]
     Active Substance: DOCUSATE SODIUM\SENNOSIDES
     Indication: CONSTIPATION
     Dosage: 2 DOSAGE FORMS DAILY; MAY TAKE 2 TWICE DAILY IF NEEDED
     Route: 048
     Dates: start: 20140522
  10. OMEPRAZOLE. [Concomitant]
     Active Substance: OMEPRAZOLE
     Dosage: 20 MILLIGRAM DAILY;
     Route: 048
     Dates: start: 20140324
  11. DIOVAN [Concomitant]
     Active Substance: VALSARTAN
     Dosage: 80 MILLIGRAM DAILY;
     Dates: start: 20131021
  12. QUETIAPINE [Concomitant]
     Active Substance: QUETIAPINE
     Dosage: 150 MILLIGRAM DAILY;
     Route: 048

REACTIONS (3)
  - Rash generalised [Recovered/Resolved]
  - Drug hypersensitivity [Recovered/Resolved]
  - Rash pruritic [Recovered/Resolved]

NARRATIVE: CASE EVENT DATE: 20140804
